FAERS Safety Report 14787339 (Version 1)
Quarter: 2018Q2

REPORT INFORMATION
  Report Type: Spontaneous
  Country: PL (occurrence: PL)
  Receive Date: 20180421
  Receipt Date: 20180421
  Transmission Date: 20180711
  Serious: Yes (Hospitalization, Other)
  Sender: FDA-Public Use
  Company Number: PL-SUN PHARMACEUTICAL INDUSTRIES LTD-2018RR-170503

PATIENT
  Sex: Male

DRUGS (5)
  1. THIOCODIN [Concomitant]
     Indication: PRODUCT USED FOR UNKNOWN INDICATION
     Route: 065
  2. KLABAX 250 MG TABLETS [Suspect]
     Active Substance: CLARITHROMYCIN
     Indication: BRONCHITIS
     Dosage: 1 TABLET IN THE EVENING
     Route: 048
     Dates: start: 20180112
  3. KLABAX 250 MG TABLETS [Suspect]
     Active Substance: CLARITHROMYCIN
     Dosage: 2X2 TABLETS
     Route: 048
     Dates: end: 20180115
  4. PIRACETAM [Concomitant]
     Active Substance: PIRACETAM
     Indication: PRODUCT USED FOR UNKNOWN INDICATION
     Dosage: UNK DF, UNK
     Route: 065
  5. OMNIC [Concomitant]
     Active Substance: TAMSULOSIN HYDROCHLORIDE
     Indication: PRODUCT USED FOR UNKNOWN INDICATION
     Route: 065

REACTIONS (2)
  - Leukopenia [Unknown]
  - Multi-organ disorder [Unknown]
